FAERS Safety Report 4666427-8 (Version None)
Quarter: 2005Q2

REPORT INFORMATION
  Report Type: 
  Country: None (occurrence: None)
  Receive Date: 20050519
  Receipt Date: 20050511
  Transmission Date: 20051028
  Serious: Yes (Other)
  Sender: FDA-Public Use
  Company Number: PHBS2005FI06752

PATIENT
  Sex: Male

DRUGS (6)
  1. TEGRETOL [Suspect]
     Indication: EPILEPSY
     Dosage: 600 MG/DAY
     Route: 048
     Dates: start: 20020516, end: 20050207
  2. PRIMASPAN [Concomitant]
     Dosage: 100 MG/DAY
  3. LIPCUT [Concomitant]
     Dosage: 20 MG/DAY
  4. CARDACE [Concomitant]
     Dosage: 2.5 MG/DAY
  5. AMARYL [Concomitant]
     Dosage: 4 MG/DAY
  6. SERONIL [Concomitant]
     Dosage: 10 MG/DAY

REACTIONS (5)
  - ALVEOLITIS ALLERGIC [None]
  - DYSPNOEA [None]
  - OXYGEN SATURATION DECREASED [None]
  - PLEURAL DISORDER [None]
  - PULMONARY FIBROSIS [None]
